FAERS Safety Report 7217086-1 (Version None)
Quarter: 2011Q1

REPORT INFORMATION
  Report Type: 
  Country: None (occurrence: None)
  Receive Date: 20110110
  Receipt Date: 20101214
  Transmission Date: 20110831
  Serious: No
  Sender: FDA-Public Use
  Company Number: US-B.I. PHARMACEUTICALS,INC./RIDGEFIELD-2010-BP-14577BP

PATIENT
  Sex: Male

DRUGS (19)
  1. LISINOPRIL [Concomitant]
     Indication: HYPERTENSION
     Dosage: 200 MG
     Route: 048
  2. VITAMIN D [Concomitant]
     Dosage: 50,000 UNITS ONCE A WEEK
     Route: 048
  3. HYDRODIURIL [Concomitant]
     Dosage: 25 MG
     Route: 048
  4. PROTONIX [Concomitant]
     Indication: GASTROOESOPHAGEAL REFLUX DISEASE
     Dosage: 40 MG
     Route: 048
  5. ZESTRIL [Concomitant]
     Indication: HYPERTENSION
     Dosage: 20 MG
     Route: 048
  6. CLARITIN [Concomitant]
     Dosage: 10 MG
     Route: 048
  7. COMBIVENT [Concomitant]
     Indication: HYPERTENSION
     Dosage: 2 PUF
     Route: 048
  8. CRESTOR [Concomitant]
     Indication: BLOOD CHOLESTEROL INCREASED
     Dosage: 10 MG
     Route: 048
  9. NASONEX [Concomitant]
     Dosage: 100 MCG
     Route: 045
  10. PRADAXA [Suspect]
     Indication: ATRIAL FIBRILLATION
     Dosage: 300 MG
     Route: 048
     Dates: start: 20101207
  11. HYDROCHLOROTHIAZIDE [Concomitant]
     Dosage: 1 TABLET
     Route: 048
  12. CALCIUM, MAGNESIUM AND ZINC [Concomitant]
     Dosage: ONE TABLET
     Route: 048
  13. ASPIRIN [Concomitant]
     Dosage: 325 MG
     Route: 048
  14. ISOSORBIDE DINITRATE [Concomitant]
     Dosage: 60 MG
     Route: 048
  15. CORDARONE [Concomitant]
     Indication: ATRIAL FIBRILLATION
     Dosage: 200 MG
     Route: 048
  16. LANTUS [Concomitant]
     Indication: DIABETES MELLITUS
     Dosage: 70 RT
     Route: 058
  17. SPIRIVA [Concomitant]
     Indication: CHRONIC OBSTRUCTIVE PULMONARY DISEASE
     Dosage: 18 MCG
     Route: 055
  18. AMIODARONE [Concomitant]
     Dosage: 200 MG
     Route: 048
  19. FISH OIL [Concomitant]
     Dosage: 2400 MG
     Route: 048

REACTIONS (4)
  - RASH [None]
  - PRURITUS [None]
  - OEDEMA PERIPHERAL [None]
  - LIP SWELLING [None]
